APPROVED DRUG PRODUCT: RISPERIDONE
Active Ingredient: RISPERIDONE
Strength: 4MG
Dosage Form/Route: TABLET;ORAL
Application: A079088 | Product #006 | TE Code: AB
Applicant: TORRENT PHARMACEUTICALS LTD
Approved: Oct 30, 2008 | RLD: No | RS: No | Type: RX